FAERS Safety Report 9230679 (Version 1)
Quarter: 2013Q2

REPORT INFORMATION
  Report Type: Spontaneous
  Country: JP (occurrence: JP)
  Receive Date: 20130415
  Receipt Date: 20130415
  Transmission Date: 20140414
  Serious: Yes (Life-Threatening)
  Sender: FDA-Public Use
  Company Number: JP-009507513-1211JPN002577

PATIENT
  Age: 44 Year
  Sex: Male

DRUGS (3)
  1. TEMODAL [Suspect]
     Indication: GLIOBLASTOMA MULTIFORME
     Dosage: 75 MG/M2, QD
     Route: 048
     Dates: start: 20110128, end: 20110301
  2. RINDERON (BETAMETHASONE) [Concomitant]
     Dosage: 3 MG, QD,DIVIDED DOSE FREQUENCY UNKNOWN
     Route: 048
     Dates: start: 20110113, end: 20110228
  3. PREDNISOLONE [Concomitant]
     Dosage: DAILY DOSE UNKNOWN; FORMULATION:POR
     Route: 048

REACTIONS (2)
  - Cytomegalovirus hepatitis [Recovering/Resolving]
  - Lymphocyte count decreased [Recovering/Resolving]
